FAERS Safety Report 9747665 (Version 2)
Quarter: 2014Q1

REPORT INFORMATION
  Report Type: Spontaneous
  Country: US (occurrence: None)
  Receive Date: 20131205
  Receipt Date: 20140115
  Transmission Date: 20141002
  Serious: Yes (Death, Hospitalization, Other)
  Sender: FDA-Public Use
  Company Number: 2013US002577

PATIENT
  Age: 61 Year
  Sex: Male
  Weight: 86.2 kg

DRUGS (22)
  1. ICLUSIG [Suspect]
     Indication: ACUTE LYMPHOCYTIC LEUKAEMIA
     Route: 048
     Dates: start: 20130719, end: 20130731
  2. CYTOXAN [Suspect]
     Indication: ACUTE LYMPHOCYTIC LEUKAEMIA
  3. MAGNESIUM HYDROXIDE W/SIMETHICONE (MAGNESIUM HYDROXIDE W/SIMETHICONE) [Concomitant]
  4. COMPAZINE (PROCHLORPERAZINE MALEATE) [Concomitant]
  5. DIGOXIN (DIGOXIN) [Concomitant]
  6. DOCUSATE SODIUM (DOCUSATE SODIUM) [Concomitant]
  7. GABAPENTIN (GABAPENTIN) [Concomitant]
  8. MELATONIN (MELATONIN) [Concomitant]
  9. METOPROLOL TARTRATE (METOPROLOL TARTRATE) [Concomitant]
  10. OMEPRAZOLE (OMEPRAZOLE) [Concomitant]
  11. OXYCODONE (OXYCODONE) [Concomitant]
  12. OXYCODONE HCL CONTROLLED RELEASE (OXYCODONE HYDROCHLORIDE) [Concomitant]
  13. POLYETHYLENE GLYCOL (POLYETHYLENE GLYCOL) [Concomitant]
  14. PREDNISONE (PREDNISONE) [Concomitant]
  15. SENNOSIDES A+B (SENNOSIDES A+B) [Concomitant]
  16. VORICONAZOLE (VORICONAZOLE) [Concomitant]
  17. PURINETHOL (MERCAPTOPURINE) [Concomitant]
  18. ONCOVIN (VINCRISTINE SULFATE) [Concomitant]
  19. METHOTREXATE (METHOTREXATE SODIUM) [Concomitant]
  20. VINCRISTINE (VINCRISTINE SULFATE) [Concomitant]
  21. DOXORUBICIN (DOXORUBICIN HYDROCHLORIDE) [Concomitant]
  22. DECADRON (DEXAMETHASONE) [Concomitant]

REACTIONS (16)
  - Subarachnoid haemorrhage [None]
  - Skull fracture [None]
  - Subdural haematoma [None]
  - Thrombocytopenia [None]
  - Cerebral infarction [None]
  - Fall [None]
  - Staphylococcal bacteraemia [None]
  - Cardiac arrest [None]
  - Neutrophil count decreased [None]
  - Fluid overload [None]
  - Headache [None]
  - Neutropenia [None]
  - Aspergillus infection [None]
  - Sepsis [None]
  - Head injury [None]
  - Contusion [None]
